FAERS Safety Report 25527763 (Version 1)
Quarter: 2025Q3

REPORT INFORMATION
  Report Type: Spontaneous
  Country: EU (occurrence: EU)
  Receive Date: 20250708
  Receipt Date: 20250708
  Transmission Date: 20251020
  Serious: Yes (Other)
  Sender: AUROBINDO
  Company Number: EU-AFSSAPS-DJ2025001036

PATIENT
  Age: 64 Year
  Sex: Male
  Weight: 75 kg

DRUGS (3)
  1. AZITHROMYCIN [Suspect]
     Active Substance: AZITHROMYCIN
     Indication: Mycobacterial infection
     Dosage: 1 GRAM, ONCE A DAY (500MG 2/JOUR)
     Route: 048
     Dates: start: 20250228, end: 20250403
  2. ETHAMBUTOL HYDROCHLORIDE [Suspect]
     Active Substance: ETHAMBUTOL HYDROCHLORIDE
     Indication: Mycobacterial infection
     Dosage: 20 MILLIGRAM/KILOGRAM, ONCE A DAY
     Route: 048
     Dates: start: 20250228, end: 20250403
  3. RIFAMPIN [Suspect]
     Active Substance: RIFAMPIN
     Indication: Mycobacterial infection
     Dosage: 10 MILLIGRAM/KILOGRAM, ONCE A DAY
     Route: 048
     Dates: start: 20250228, end: 20250403

REACTIONS (1)
  - Visual impairment [Not Recovered/Not Resolved]

NARRATIVE: CASE EVENT DATE: 20250403
